FAERS Safety Report 17012724 (Version 1)
Quarter: 2019Q4

REPORT INFORMATION
  Report Type: Spontaneous
  Country: US (occurrence: US)
  Receive Date: 20191001
  Receipt Date: 20191001
  Transmission Date: 20200122
  Serious: No
  Sender: FDA-Public Use
  Company Number: None

PATIENT
  Age: 77 Year
  Sex: Male

DRUGS (1)
  1. COSENTYX [Suspect]
     Active Substance: SECUKINUMAB
     Indication: RHEUMATOID ARTHRITIS
     Route: 058
     Dates: start: 201901

REACTIONS (6)
  - Renal disorder [None]
  - Cardiac disorder [None]
  - Infection [None]
  - Dyspnoea [None]
  - Thyroid disorder [None]
  - Hypotension [None]

NARRATIVE: CASE EVENT DATE: 20190930
